FAERS Safety Report 24681751 (Version 2)
Quarter: 2024Q4

REPORT INFORMATION
  Report Type: Report from Study
  Country: DE (occurrence: DE)
  Receive Date: 20241130
  Receipt Date: 20241210
  Transmission Date: 20250114
  Serious: Yes (Hospitalization)
  Sender: ABBVIE
  Company Number: DE-ABBVIE-6023326

PATIENT
  Age: 70 Year
  Sex: Male

DRUGS (2)
  1. CARBIDOPA\LEVODOPA [Suspect]
     Active Substance: CARBIDOPA\LEVODOPA
     Indication: Parkinson^s disease
     Dosage: MD 5,7ML; CRT 2,2ML/H; ED 0,4ML
     Route: 050
  2. CARBIDOPA\LEVODOPA [Suspect]
     Active Substance: CARBIDOPA\LEVODOPA
     Dosage: MD 5,7ML; CRT 1,7ML/H; ED 0,4ML?REDUCED
     Route: 050
     Dates: start: 20240409, end: 20241106

REACTIONS (7)
  - COVID-19 [Unknown]
  - Device dislocation [Not Recovered/Not Resolved]
  - Hallucination [Unknown]
  - Hyperkinesia [Unknown]
  - Atrial fibrillation [Unknown]
  - Device use issue [Unknown]
  - Stoma complication [Unknown]

NARRATIVE: CASE EVENT DATE: 20241101
